FAERS Safety Report 21461736 (Version 4)
Quarter: 2022Q4

REPORT INFORMATION
  Report Type: Spontaneous
  Country: US (occurrence: US)
  Receive Date: 20221015
  Receipt Date: 20221103
  Transmission Date: 20230113
  Serious: No
  Sender: FDA-Public Use
  Company Number: US-UNITED THERAPEUTICS-UNT-2022-023173

PATIENT
  Sex: Female
  Weight: 56.689 kg

DRUGS (7)
  1. REMODULIN [Suspect]
     Active Substance: TREPROSTINIL
     Indication: Pulmonary arterial hypertension
     Dosage: UNK, CONTINUING
     Route: 058
     Dates: start: 20220926
  2. REMODULIN [Suspect]
     Active Substance: TREPROSTINIL
     Dosage: 0.023 ?G/KG, CONTINUING (PRE-FILLED WITH 3 ML PER CASSETTE; AT INFUSION RATE OF 31 MCL PER HOUR)
     Route: 058
     Dates: start: 202209
  3. REMODULIN [Suspect]
     Active Substance: TREPROSTINIL
     Dosage: 0.027 ?G/KG (5 MG PER ML PRE-FILLED CASSETTE; SUBCUTANEOUSLY AT A RATE OF 18 MCL /HOUR), CONTINUING
     Route: 058
     Dates: start: 2022
  4. REMODULIN [Suspect]
     Active Substance: TREPROSTINIL
     Dosage: 0.025 ?G/KG, CONTINUING (PHARMACY PRE-FILLED WITH 3 ML PER CASSETTE, AT A PUMP RATE OF 35 MCL PER HO
     Route: 058
     Dates: start: 2022
  5. ADCIRCA [Concomitant]
     Active Substance: TADALAFIL
     Indication: Pulmonary arterial hypertension
     Dosage: UNK
     Route: 065
  6. OPSUMIT [Concomitant]
     Active Substance: MACITENTAN
     Indication: Product used for unknown indication
     Dosage: UNK
     Route: 065
  7. UPTRAVI [Concomitant]
     Active Substance: SELEXIPAG
     Indication: Pulmonary arterial hypertension
     Dosage: 1200 MCG, BID
     Route: 048
     Dates: end: 202209

REACTIONS (3)
  - Infusion site pain [Recovered/Resolved]
  - Infusion site swelling [Unknown]
  - Infusion site erythema [Recovered/Resolved]

NARRATIVE: CASE EVENT DATE: 20220101
